FAERS Safety Report 21097364 (Version 1)
Quarter: 2022Q3

REPORT INFORMATION
  Report Type: Report from Study
  Country: AR (occurrence: AR)
  Receive Date: 20220719
  Receipt Date: 20220719
  Transmission Date: 20221026
  Serious: Yes (Other)
  Sender: FDA-Public Use
  Company Number: AR-ABBVIE-22K-007-4473149-00

PATIENT
  Sex: Female

DRUGS (2)
  1. HUMIRA [Suspect]
     Active Substance: ADALIMUMAB
     Indication: Rheumatoid arthritis
     Route: 058
     Dates: start: 20151231
  2. ADALIMUMAB [Suspect]
     Active Substance: ADALIMUMAB
     Indication: Product used for unknown indication
     Dosage: ADALIMUMAB (BIOSIMILAR)
     Route: 065
     Dates: start: 2022

REACTIONS (4)
  - Foot deformity [Unknown]
  - Arthritis [Unknown]
  - Product dispensing error [Unknown]
  - Product substitution [Unknown]

NARRATIVE: CASE EVENT DATE: 20220101
